FAERS Safety Report 7588967-4 (Version None)
Quarter: 2011Q2

REPORT INFORMATION
  Report Type: 
  Country: None (occurrence: None)
  Receive Date: 20110627
  Receipt Date: 20110616
  Transmission Date: 20111010
  Serious: No
  Sender: FDA-Public Use
  Company Number: 2011SP014230

PATIENT
  Sex: Female
  Weight: 3.34 kg

DRUGS (1)
  1. IMPLANON [Suspect]
     Indication: PREGNANCY
     Dosage: ; TRPL
     Route: 064
     Dates: start: 20100702, end: 20101201

REACTIONS (2)
  - MATERNAL DRUGS AFFECTING FOETUS [None]
  - FOETAL DISORDER [None]
